FAERS Safety Report 6465348-8 (Version None)
Quarter: 2009Q4

REPORT INFORMATION
  Report Type: 
  Country: None (occurrence: None)
  Receive Date: 20091201
  Receipt Date: 20090629
  Transmission Date: 20100525
  Serious: No
  Sender: FDA-Public Use
  Company Number: US-AMGEN-KDL280271

PATIENT
  Sex: Female
  Weight: 91.3 kg

DRUGS (26)
  1. ENBREL [Suspect]
     Indication: RHEUMATOID ARTHRITIS
     Route: 058
     Dates: start: 20070221
  2. PLAQUENIL [Concomitant]
     Route: 048
  3. CORTICOSTEROID NOS [Concomitant]
  4. COLCHICINE [Concomitant]
  5. LASIX [Concomitant]
  6. CILOSTAZOL [Concomitant]
  7. COREG [Concomitant]
  8. IMDUR [Concomitant]
  9. INSULIN [Concomitant]
  10. VICODIN [Concomitant]
  11. CENTRUM SILVER [Concomitant]
  12. CALCIUM [Concomitant]
  13. VITAMIN D [Concomitant]
  14. AMLODIPINE [Concomitant]
  15. HYDRALAZINE HCL [Concomitant]
  16. CLONIDINE [Concomitant]
  17. ALLEGRA [Concomitant]
  18. LOTREL [Concomitant]
     Route: 061
  19. ACIPHEX [Concomitant]
  20. FORTEO [Concomitant]
  21. PREDNISONE TAB [Concomitant]
  22. UNSPECIFIED MEDICATION [Concomitant]
  23. TIGECYCLINE [Concomitant]
  24. PLAVIX [Concomitant]
  25. MINOCYCLINE HCL [Concomitant]
  26. TRIAMTERENE AND HYDROCHLOROTHIAZIDE [Concomitant]

REACTIONS (4)
  - CATARACT [None]
  - ECZEMA [None]
  - PYREXIA [None]
  - RHEUMATOID ARTHRITIS [None]
